FAERS Safety Report 22216513 (Version 4)
Quarter: 2024Q3

REPORT INFORMATION
  Report Type: Report from Study
  Country: US (occurrence: US)
  Receive Date: 20230417
  Receipt Date: 20240911
  Transmission Date: 20241016
  Serious: Yes (Hospitalization, Other)
  Sender: ABBVIE
  Company Number: US-ABBVIE-4728683

PATIENT
  Age: 75 Year
  Sex: Female
  Weight: 68 kg

DRUGS (7)
  1. HUMIRA [Suspect]
     Active Substance: ADALIMUMAB
     Indication: Psoriatic arthropathy
     Dosage: FORM STRENGTH: 40 MILLIGRAM
     Route: 058
     Dates: start: 202311
  2. HUMIRA [Suspect]
     Active Substance: ADALIMUMAB
     Indication: Psoriasis
     Dosage: FORM STRENGTH: 40 MILLIGRAM
     Route: 058
     Dates: start: 20131125, end: 202309
  3. HYDROCODONE [Suspect]
     Active Substance: HYDROCODONE
     Indication: Procedural pain
     Dosage: LAST ADMIN DATE: 2023
     Route: 065
     Dates: start: 202303
  4. GLIMEPIRIDE [Concomitant]
     Active Substance: GLIMEPIRIDE
     Indication: Diabetes mellitus
  5. METFORMIN [Concomitant]
     Active Substance: METFORMIN HYDROCHLORIDE
     Indication: Diabetes mellitus
  6. TOPIRAMATE [Suspect]
     Active Substance: TOPIRAMATE
     Indication: Product used for unknown indication
     Route: 065
     Dates: start: 2019, end: 20240524
  7. PHENTERMINE [Suspect]
     Active Substance: PHENTERMINE\PHENTERMINE HYDROCHLORIDE
     Indication: Product used for unknown indication
     Route: 065
     Dates: start: 2019, end: 20240524

REACTIONS (8)
  - Knee arthroplasty [Recovering/Resolving]
  - Procedural pain [Unknown]
  - Constipation [Recovered/Resolved]
  - Fall [Unknown]
  - Bone contusion [Unknown]
  - Arthralgia [Unknown]
  - Back pain [Unknown]
  - Weight decreased [Recovering/Resolving]

NARRATIVE: CASE EVENT DATE: 20230301
